FAERS Safety Report 7569126-8 (Version None)
Quarter: 2011Q2

REPORT INFORMATION
  Report Type: 
  Country: None (occurrence: None)
  Receive Date: 20110623
  Receipt Date: 20110608
  Transmission Date: 20111010
  Serious: Yes (Hospitalization, Other)
  Sender: FDA-Public Use
  Company Number: PHHY2011ES50214

PATIENT
  Age: 68 Year
  Sex: Female

DRUGS (6)
  1. FUROSEMIDE [Interacting]
     Indication: CARDIAC FAILURE
     Dosage: UNK
     Dates: start: 20101109
  2. DIGOXIN [Suspect]
     Indication: ATRIAL FIBRILLATION
     Dosage: UNK
     Dates: start: 20091109, end: 20110404
  3. GABAPENTIN [Concomitant]
     Indication: NEUROPATHY PERIPHERAL
     Dosage: UNK
     Dates: start: 20101122
  4. SINTROM [Concomitant]
     Dosage: UNK
     Dates: start: 20070718
  5. AMLODIPINE BESYLATE AND VALSARTAN [Interacting]
     Indication: HYPERTENSION
     Dosage: UNK
     Dates: start: 20101122, end: 20110404
  6. OMEPRAZOLE [Concomitant]
     Dosage: UNK
     Dates: start: 20091109

REACTIONS (9)
  - RENAL FAILURE ACUTE [None]
  - ELECTROCARDIOGRAM ABNORMAL [None]
  - BLOOD POTASSIUM DECREASED [None]
  - BLOOD CREATININE INCREASED [None]
  - TOXICITY TO VARIOUS AGENTS [None]
  - ABDOMINAL PAIN UPPER [None]
  - NAUSEA [None]
  - DECREASED APPETITE [None]
  - DRUG INTERACTION [None]
